FAERS Safety Report 7865990-3 (Version None)
Quarter: 2011Q4

REPORT INFORMATION
  Report Type: 
  Country: None (occurrence: None)
  Receive Date: 20111028
  Receipt Date: 20110404
  Transmission Date: 20120403
  Serious: No
  Sender: FDA-Public Use
  Company Number: US-GLAXOSMITHKLINE-A0921298A

PATIENT
  Age: 63 Year
  Sex: Male

DRUGS (3)
  1. SPIRIVA [Concomitant]
  2. ALBUTEROL SULFATE [Concomitant]
  3. ADVAIR DISKUS 100/50 [Suspect]
     Indication: RESPIRATORY DISORDER
     Dosage: 1PUFF TWICE PER DAY
     Route: 055

REACTIONS (4)
  - DYSPNOEA [None]
  - DRUG INEFFECTIVE [None]
  - PRODUCT QUALITY ISSUE [None]
  - FATIGUE [None]
